FAERS Safety Report 22942930 (Version 2)
Quarter: 2023Q4

REPORT INFORMATION
  Report Type: Spontaneous
  Country: IT (occurrence: IT)
  Receive Date: 20230914
  Receipt Date: 20231114
  Transmission Date: 20240110
  Serious: Yes (Hospitalization, Other)
  Sender: FDA-Public Use
  Company Number: IT-MINISAL02-942736

PATIENT
  Age: 57 Year
  Sex: Female

DRUGS (5)
  1. LORAZEPAM [Suspect]
     Active Substance: LORAZEPAM
     Indication: Product used for unknown indication
     Dosage: 5 DOSAGE FORM (2.5 MG 5CP)
     Route: 048
     Dates: start: 20230320, end: 20230320
  2. OLANZAPINE [Suspect]
     Active Substance: OLANZAPINE
     Indication: Product used for unknown indication
     Dosage: 5 DOSAGE FORM (5 MG 5 CP)
     Route: 048
  3. GABAPENTIN [Concomitant]
     Active Substance: GABAPENTIN
     Indication: Product used for unknown indication
     Dosage: 300 MILLIGRAM (DATA INIZIO TERAPIA ATTRIBUITA D^UFFICIO)
     Route: 048
  4. SERTRALINE [Concomitant]
     Active Substance: SERTRALINE HYDROCHLORIDE
     Indication: Product used for unknown indication
     Dosage: 100 MILLIGRAM (DATA INIZIO TERAPIA ATTRIBUITA D^UFFICIO100 MG ORE 20.00)
     Route: 048
  5. PALIPERIDONE PALMITATE [Concomitant]
     Active Substance: PALIPERIDONE PALMITATE
     Indication: Product used for unknown indication
     Dosage: 75 MILLIGRAM (DATA INIZIO TERAPIA ATTRIBUITA D^UFFICIO75 MG 1FL OGNI 21 GG)
     Route: 030

REACTIONS (4)
  - Sopor [Unknown]
  - Psychomotor skills impaired [Unknown]
  - Drug abuse [Recovered/Resolved]
  - Intentional self-injury [Recovered/Resolved]

NARRATIVE: CASE EVENT DATE: 20230320
